FAERS Safety Report 7917131-1 (Version None)
Quarter: 2011Q4

REPORT INFORMATION
  Report Type: 
  Country: None (occurrence: None)
  Receive Date: 20111116
  Receipt Date: 20111114
  Transmission Date: 20120403
  Serious: Yes (Hospitalization)
  Sender: FDA-Public Use
  Company Number: US-PFIZER INC-2011278481

PATIENT
  Sex: Male
  Weight: 47.6 kg

DRUGS (2)
  1. PRILOSEC [Concomitant]
     Indication: BACK PAIN
     Dosage: UNK
  2. SUTENT [Suspect]
     Indication: RENAL CANCER
     Dosage: UNK
     Dates: start: 20091201, end: 20111001

REACTIONS (2)
  - PNEUMONIA [None]
  - GASTRIC ULCER HAEMORRHAGE [None]
